FAERS Safety Report 8800818 (Version 1)
Quarter: 2012Q4

REPORT INFORMATION
  Report Type: 
  Country: GB (occurrence: GB)
  Receive Date: 20120921
  Receipt Date: 20120921
  Transmission Date: 20130627
  Serious: Yes (Other)
  Sender: FDA-Public Use
  Company Number: GB-PFIZER INC-2012231834

PATIENT
  Age: 78 Year
  Sex: Male

DRUGS (1)
  1. LIPITOR [Suspect]
     Dosage: 10 mg, daily
     Dates: start: 2002

REACTIONS (4)
  - Transient ischaemic attack [Unknown]
  - Prostate cancer [Recovered/Resolved]
  - Ileostomy closure [Unknown]
  - Tinnitus [Unknown]
